FAERS Safety Report 5576444-1 (Version None)
Quarter: 2007Q4

REPORT INFORMATION
  Report Type: 
  Country: None (occurrence: None)
  Receive Date: 20071228
  Receipt Date: 20071221
  Transmission Date: 20080405
  Serious: Yes (Hospitalization)
  Sender: FDA-Public Use
  Company Number: JP-WYE-H01822107

PATIENT
  Sex: Female

DRUGS (10)
  1. HYPEN [Suspect]
     Indication: INTERVERTEBRAL DISC DISORDER
     Dosage: DAILY DOSE UNKNOWN
     Route: 048
     Dates: end: 20060307
  2. TIZANIDINE HCL [Concomitant]
     Indication: INTERVERTEBRAL DISC DISORDER
     Dosage: NOT SPECIFIED
     Route: 048
  3. MECOBALAMIN [Concomitant]
     Indication: INTERVERTEBRAL DISC DISORDER
     Dosage: NOT SPECIFIED
     Route: 048
  4. ZOLPIDEM TARTRATE [Concomitant]
     Indication: INSOMNIA
     Dosage: NOT SPECIFIED
     Route: 048
  5. BENAZEPRIL HYDROCHLORIDE [Concomitant]
     Indication: MYOCARDIAL ISCHAEMIA
     Dosage: NOT SPECIFIED
     Route: 048
  6. NICORANDIL [Concomitant]
     Indication: MYOCARDIAL ISCHAEMIA
     Dosage: NOT SPECIFIED
     Route: 048
  7. ISOSORBIDE DINITRATE [Concomitant]
     Indication: MYOCARDIAL ISCHAEMIA
     Dosage: NOT SPECIFIED
     Route: 048
  8. ASPIRIN [Suspect]
     Indication: MYOCARDIAL ISCHAEMIA
     Dosage: DAILY DOSE UNKNOWN
     Route: 048
     Dates: end: 20060307
  9. ASPIRIN [Suspect]
     Dosage: DAILY DOSE UNKNOWN
     Route: 048
     Dates: end: 20070307
  10. NIFEDIPINE [Concomitant]
     Indication: MYOCARDIAL ISCHAEMIA
     Dosage: NOT SPECIFIED
     Route: 048

REACTIONS (1)
  - DIVERTICULUM INTESTINAL HAEMORRHAGIC [None]
